FAERS Safety Report 25263174 (Version 2)
Quarter: 2025Q2

REPORT INFORMATION
  Report Type: Spontaneous
  Country: US (occurrence: US)
  Receive Date: 20250502
  Receipt Date: 20250522
  Transmission Date: 20250717
  Serious: Yes (Other)
  Sender: CATALYST PHARMA
  Company Number: US-CATALYST PHARMACEUTICALS-US-CATA-25-00619

PATIENT
  Age: 12 Year
  Sex: Male
  Weight: 32.195 kg

DRUGS (14)
  1. AGAMREE [Suspect]
     Active Substance: VAMOROLONE
     Indication: Duchenne muscular dystrophy
     Dosage: 4.8 MILLILITER, ONCE A DAY
     Route: 048
     Dates: start: 20240912, end: 202504
  2. AGAMREE [Suspect]
     Active Substance: VAMOROLONE
     Dosage: 4 ML ONCE A DAY, TAPERING OFF OF AGAMREE, DOSE GOING DOWN
     Route: 048
     Dates: start: 202504
  3. CALCIUM CARBONATE\CHOLECALCIFEROL [Concomitant]
     Active Substance: CALCIUM CARBONATE\CHOLECALCIFEROL
     Indication: Prophylaxis
     Dosage: 600 MG OF CALCIUM 12.5 OF VITAMIN D3 ONCE A DAY
     Route: 065
  4. COENZYME Q10 [Concomitant]
     Active Substance: DIETARY SUPPLEMENT\UBIDECARENONE
     Indication: Cardiovascular event prophylaxis
     Dosage: 100 MG, ONCE A DAY
     Route: 065
  5. DOCUSATE SODIUM [Concomitant]
     Active Substance: DOCUSATE SODIUM
     Indication: Constipation
     Dosage: 100 MG, ONCE A DAY
     Route: 065
  6. ENTRESTO [Concomitant]
     Active Substance: SACUBITRIL\VALSARTAN
     Indication: Cardiovascular event prophylaxis
     Dosage: 24-26 MG ONCE A DAY
     Route: 065
  7. KRILL OIL [Concomitant]
     Active Substance: DIETARY SUPPLEMENT\KRILL OIL
     Indication: Cardiovascular event prophylaxis
     Dosage: 600 MG ONCE A DAY
     Route: 065
  8. PREDNISONE [Concomitant]
     Active Substance: PREDNISONE
     Indication: Duchenne muscular dystrophy
     Route: 065
  9. HERBALS [Concomitant]
     Active Substance: HERBALS
     Indication: Immune disorder prophylaxis
     Dosage: ONCE A DAY
     Route: 048
  10. SPIRONOLACTONE [Concomitant]
     Active Substance: SPIRONOLACTONE
     Indication: Cardiovascular event prophylaxis
     Dosage: 25 MG ONCE A DAY
     Route: 065
  11. HERBALS\TURMERIC [Concomitant]
     Active Substance: HERBALS\TURMERIC
     Indication: Duchenne muscular dystrophy
     Dosage: 1000 MG ONCE A DAY
     Route: 065
  12. VILTEPSO [Concomitant]
     Active Substance: VILTOLARSEN
     Indication: Duchenne muscular dystrophy
     Dosage: ONCE A WEEK
     Route: 042
  13. VITAFUSION MULTI+ IMMUNE GUMMIES [Concomitant]
     Indication: Immune disorder prophylaxis
     Dosage: 2 GUMMIES ONCE A DAY
     Route: 065
  14. VITAMIN D3 [Concomitant]
     Active Substance: CHOLECALCIFEROL
     Indication: Prophylaxis
     Dosage: 2000 IU, ONCE A DAY
     Route: 065

REACTIONS (4)
  - General physical health deterioration [Not Recovered/Not Resolved]
  - Duchenne muscular dystrophy [Not Recovered/Not Resolved]
  - Disease progression [Not Recovered/Not Resolved]
  - Drug ineffective [Not Recovered/Not Resolved]

NARRATIVE: CASE EVENT DATE: 20240901
